FAERS Safety Report 6706174-1 (Version None)
Quarter: 2010Q2

REPORT INFORMATION
  Report Type: 
  Country: None (occurrence: None)
  Receive Date: 20100503
  Receipt Date: 20100421
  Transmission Date: 20101027
  Serious: Yes (Life-Threatening, Hospitalization)
  Sender: FDA-Public Use
  Company Number: CH-PFIZER INC-2010050203

PATIENT
  Age: 29 Year
  Sex: Male

DRUGS (1)
  1. SUTENT [Suspect]
     Indication: LYMPHANGIOMA
     Dosage: 12.5 MG, UNK
     Route: 048
     Dates: start: 20090401, end: 20100303

REACTIONS (1)
  - SHOCK HAEMORRHAGIC [None]
